FAERS Safety Report 9549022 (Version 1)
Quarter: 2013Q3

REPORT INFORMATION
  Report Type: Spontaneous
  Country: US (occurrence: None)
  Receive Date: 20130923
  Receipt Date: 20130923
  Transmission Date: 20140515
  Serious: Yes (Other)
  Sender: FDA-Public Use
  Company Number: None

PATIENT
  Age: 62 Year
  Sex: Female
  Weight: 86.18 kg

DRUGS (1)
  1. COMBIVENT RESPIMAT [Suspect]
     Indication: ASTHMA
     Route: 055
     Dates: start: 20130919, end: 20130922

REACTIONS (4)
  - Rash [None]
  - Blister [None]
  - Urticaria [None]
  - Lip swelling [None]
